FAERS Safety Report 11331511 (Version 1)
Quarter: 2015Q3

REPORT INFORMATION
  Report Type: Report from Study
  Country: FR (occurrence: FR)
  Receive Date: 20150803
  Receipt Date: 20150803
  Transmission Date: 20151125
  Serious: Yes (Hospitalization, Other)
  Sender: FDA-Public Use
  Company Number: FR-EISAI MEDICAL RESEARCH-EC-2014-000061

PATIENT
  Age: 49 Year
  Sex: Female
  Weight: 47 kg

DRUGS (20)
  1. DOLIPRANE [Concomitant]
     Active Substance: ACETAMINOPHEN
  2. LANSOYL [Concomitant]
     Active Substance: MINERAL OIL
  3. INNOHEP [Concomitant]
     Active Substance: TINZAPARIN SODIUM
  4. LENVATINIB [Suspect]
     Active Substance: LENVATINIB
     Route: 048
     Dates: start: 20130407, end: 20130504
  5. LENVATINIB [Suspect]
     Active Substance: LENVATINIB
     Route: 048
     Dates: start: 20130510, end: 20140111
  6. LEVOTHYROX [Concomitant]
     Active Substance: LEVOTHYROXINE
  7. GLYCEROL\PARAFFIN [Concomitant]
     Active Substance: GLYCERIN\PARAFFIN
  8. LENVATINIB [Suspect]
     Active Substance: LENVATINIB
     Route: 048
     Dates: start: 20140322, end: 20140721
  9. LENVATINIB [Suspect]
     Active Substance: LENVATINIB
     Route: 048
     Dates: start: 20140113, end: 20140209
  10. OXYCONTIN [Concomitant]
     Active Substance: OXYCODONE HYDROCHLORIDE
  11. LENVATINIB [Suspect]
     Active Substance: LENVATINIB
     Indication: THYROID CANCER METASTATIC
     Route: 048
     Dates: start: 20130111, end: 20130402
  12. LENVATINIB [Suspect]
     Active Substance: LENVATINIB
     Route: 048
     Dates: start: 20140726, end: 20140906
  13. LOVENOX [Concomitant]
     Active Substance: ENOXAPARIN SODIUM
  14. LENVATINIB [Suspect]
     Active Substance: LENVATINIB
     Route: 048
     Dates: start: 20130508, end: 20130509
  15. LENVATINIB [Suspect]
     Active Substance: LENVATINIB
     Route: 048
     Dates: start: 20140915, end: 20150531
  16. EDUCTYL [Concomitant]
     Active Substance: POTASSIUM BITARTRATE\SODIUM BICARBONATE
  17. PRIMPERAN [Concomitant]
     Active Substance: METOCLOPRAMIDE HYDROCHLORIDE
  18. LENVATINIB [Suspect]
     Active Substance: LENVATINIB
     Route: 048
     Dates: start: 20140213, end: 20140316
  19. EUPANTOL [Concomitant]
     Active Substance: PANTOPRAZOLE SODIUM
  20. OXYNORMORO [Concomitant]
     Active Substance: OXYCODONE

REACTIONS (2)
  - Hepatocellular injury [Recovered/Resolved]
  - Musculoskeletal chest pain [Recovered/Resolved]

NARRATIVE: CASE EVENT DATE: 20140825
